FAERS Safety Report 7318953-0 (Version None)
Quarter: 2011Q1

REPORT INFORMATION
  Report Type: 
  Country: None (occurrence: None)
  Receive Date: 20110215
  Receipt Date: 20110131
  Transmission Date: 20110831
  Serious: Yes (Life-Threatening, Other)
  Sender: FDA-Public Use
  Company Number: 2011000503

PATIENT
  Age: 64 Year
  Sex: Female

DRUGS (2)
  1. AVASTIN [Concomitant]
  2. TARCEVA [Suspect]
     Indication: BRAIN NEOPLASM MALIGNANT
     Dosage: 200 MG, DAILY, ORAL
     Route: 048
     Dates: start: 20110106

REACTIONS (8)
  - DERMATITIS ACNEIFORM [None]
  - NAUSEA [None]
  - FATIGUE [None]
  - MUSCULAR WEAKNESS [None]
  - CONVULSION [None]
  - BALANCE DISORDER [None]
  - ASTHENIA [None]
  - DIZZINESS [None]
